FAERS Safety Report 9620941 (Version 2)
Quarter: 2013Q4

REPORT INFORMATION
  Report Type: Spontaneous
  Country: US (occurrence: US)
  Receive Date: 20131015
  Receipt Date: 20131016
  Transmission Date: 20140711
  Serious: No
  Sender: FDA-Public Use
  Company Number: PHEH2013US021189

PATIENT
  Sex: Male

DRUGS (7)
  1. DIOVAN [Suspect]
     Dosage: 160 MG, QD
     Route: 048
  2. DIOVAN [Suspect]
     Dosage: UNK UKN, UNK
  3. ATENOLOL [Suspect]
     Dosage: UNK UKN, UNK
  4. AMLODIPINE [Suspect]
     Dosage: UNK UKN, UNK
  5. AMBIEN [Suspect]
     Dosage: UNK UKN, UNK
  6. XANAX [Suspect]
     Dosage: UNK UKN, UNK
  7. XARELTO [Suspect]
     Dosage: UNK UKN, UNK

REACTIONS (4)
  - Malaise [Unknown]
  - Arthropod sting [Unknown]
  - Headache [Unknown]
  - Nausea [Unknown]
